FAERS Safety Report 13182779 (Version 2)
Quarter: 2017Q3

REPORT INFORMATION
  Report Type: Spontaneous
  Country: US (occurrence: US)
  Receive Date: 20170203
  Receipt Date: 20170719
  Transmission Date: 20171127
  Serious: No
  Sender: FDA-Public Use
  Company Number: US-PFIZER INC-2017046860

PATIENT
  Age: 81 Year
  Sex: Male
  Weight: 116 kg

DRUGS (16)
  1. LISINOPRIL. [Concomitant]
     Active Substance: LISINOPRIL
     Indication: CARDIAC DISORDER
     Dosage: 5 MG, 1X/DAY
     Route: 048
     Dates: start: 2015, end: 20161207
  2. METFORMIN [Concomitant]
     Active Substance: METFORMIN HYDROCHLORIDE
     Dosage: 500 MG, 1X/DAY
     Route: 048
  3. OMEGA XL [Concomitant]
     Active Substance: DIETARY SUPPLEMENT
     Indication: ARTHRITIS
  4. METFORMIN [Concomitant]
     Active Substance: METFORMIN HYDROCHLORIDE
     Indication: DIABETES MELLITUS
     Dosage: 1000 MG, DAILY (2 A DAY)
     Route: 048
     Dates: start: 2014
  5. FOLIC ACID. [Suspect]
     Active Substance: FOLIC ACID
     Indication: PULSE ABNORMAL
     Dosage: 800, 1X/DAY
     Route: 048
     Dates: start: 2015
  6. ATORVASTATIN [Concomitant]
     Active Substance: ATORVASTATIN
     Indication: BLOOD CHOLESTEROL ABNORMAL
     Dosage: 10 MG, 1X/DAY (HALF 20MG)
     Route: 048
     Dates: start: 2014
  7. GARCINIA CAMBOGIA /08679801/ [Concomitant]
     Indication: OBESITY
     Dosage: 2 DF, DAILY
     Route: 048
     Dates: start: 201608, end: 201611
  8. OMEGA XL [Concomitant]
     Active Substance: DIETARY SUPPLEMENT
     Indication: ARTHROPATHY
     Dosage: 1 OR 2 A DAY AND IS TRYING TO GET DOWN TO 1
     Route: 048
     Dates: start: 2015
  9. LYRICA [Concomitant]
     Active Substance: PREGABALIN
     Indication: DIABETIC NEPHROPATHY
     Dosage: 300 MG, 2X/DAY (MORNING AND NIGHT)
     Route: 048
     Dates: end: 20161207
  10. LISINOPRIL. [Concomitant]
     Active Substance: LISINOPRIL
     Dosage: UNK
     Dates: end: 201610
  11. ASPIRIN /00002701/ [Concomitant]
     Active Substance: ASPIRIN
     Indication: PROPHYLAXIS
     Dosage: 81 MG, 1X/DAY
     Route: 048
     Dates: start: 2013
  12. IRON [Concomitant]
     Active Substance: IRON
     Indication: SUPPLEMENTATION THERAPY
     Dosage: 65, DAILY
     Route: 048
     Dates: end: 201611
  13. FOLIC ACID. [Suspect]
     Active Substance: FOLIC ACID
     Dosage: 600
     Route: 048
  14. FLUTICASONE. [Concomitant]
     Active Substance: FLUTICASONE
     Dosage: UNK
     Dates: end: 201611
  15. LYRICA [Concomitant]
     Active Substance: PREGABALIN
     Dosage: UNK
     Dates: end: 201611
  16. FLUTICASONE. [Concomitant]
     Active Substance: FLUTICASONE
     Indication: COUGH
     Dosage: 2 DF, 1X/DAY (AT NIGHT)
     Dates: end: 20161207

REACTIONS (1)
  - Drug effect incomplete [Recovered/Resolved]
